FAERS Safety Report 5522215-1 (Version None)
Quarter: 2007Q4

REPORT INFORMATION
  Report Type: 
  Country: None (occurrence: None)
  Receive Date: 20071120
  Receipt Date: 20071115
  Transmission Date: 20080405
  Serious: Yes (Life-Threatening)
  Sender: FDA-Public Use
  Company Number: D0055155A

PATIENT
  Age: 65 Year
  Sex: Female
  Weight: 48 kg

DRUGS (1)
  1. VIANI 50-250 DISKUS [Suspect]
     Indication: BRONCHIAL HYPERREACTIVITY
     Dosage: 300MCG TWICE PER DAY
     Route: 055
     Dates: start: 20020101

REACTIONS (1)
  - SQUAMOUS CELL CARCINOMA [None]
